FAERS Safety Report 6808629-8 (Version None)
Quarter: 2010Q2

REPORT INFORMATION
  Report Type: 
  Country: None (occurrence: None)
  Receive Date: 20100629
  Receipt Date: 20090804
  Transmission Date: 20101027
  Serious: Yes (Other)
  Sender: FDA-Public Use
  Company Number: US-PFIZER INC-2009250823

PATIENT
  Sex: Male

DRUGS (6)
  1. LINEZOLID [Suspect]
     Dosage: 600 MG, 2X/DAY
     Route: 048
     Dates: end: 20090519
  2. HEPARIN SODIUM [Suspect]
     Dosage: UNK GTT, UNK
     Route: 042
     Dates: start: 20090513, end: 20090516
  3. ALL OTHER THERAPEUTIC PRODUCTS [Suspect]
     Indication: GOUT
     Dosage: 80 MG, 1X/DAY
     Route: 048
     Dates: start: 20090513, end: 20090526
  4. ALL OTHER THERAPEUTIC PRODUCTS [Suspect]
     Dosage: 40 MG, 1X/DAY
     Route: 048
     Dates: start: 20090504, end: 20090512
  5. ALL OTHER THERAPEUTIC PRODUCTS [Suspect]
     Dosage: 80 MG, 1X/DAY
     Route: 048
     Dates: start: 20090101
  6. VOLTAREN [Concomitant]
     Dosage: UNK., 4 IN 1 D
     Route: 061

REACTIONS (1)
  - PLATELET COUNT DECREASED [None]
